FAERS Safety Report 9289983 (Version 1)
Quarter: 2013Q2

REPORT INFORMATION
  Report Type: Report from Study
  Country: GB (occurrence: GB)
  Receive Date: 20130515
  Receipt Date: 20130515
  Transmission Date: 20140414
  Serious: Yes (Other)
  Sender: FDA-Public Use
  Company Number: GB-JNJFOC-20130504936

PATIENT
  Sex: Male

DRUGS (5)
  1. GOLIMUMAB [Suspect]
     Indication: PRODUCT USED FOR UNKNOWN INDICATION
     Route: 058
  2. GOLIMUMAB [Suspect]
     Indication: PRODUCT USED FOR UNKNOWN INDICATION
     Route: 058
     Dates: start: 20130502
  3. TRAMADOL [Concomitant]
     Indication: PAIN
  4. PARACETAMOL [Concomitant]
     Indication: PAIN
  5. NAPROXEN [Concomitant]
     Indication: PAIN

REACTIONS (3)
  - Depression [Unknown]
  - Pain [Not Recovered/Not Resolved]
  - Movement disorder [Unknown]
